FAERS Safety Report 8935417 (Version 1)
Quarter: 2012Q4

REPORT INFORMATION
  Report Type: Spontaneous
  Country: US (occurrence: None)
  Receive Date: 20121119
  Receipt Date: 20121119
  Transmission Date: 20130627
  Serious: Yes (Hospitalization)
  Sender: FDA-Public Use
  Company Number: LISI20120025

PATIENT
  Age: 63 Year
  Sex: Female

DRUGS (4)
  1. LISINOPRIL [Suspect]
     Indication: PRODUCT USED FOR UNKNOWN INDICATION
     Route: 048
  2. IBUPROFEN [Suspect]
     Route: 048
  3. METOPOROLOL (METOPROLOL) [Concomitant]
  4. ASPIRIN (ACETYLSALICYLIC ACID) [Concomitant]

REACTIONS (8)
  - Glomerulonephritis membranous [None]
  - Renal salt-wasting syndrome [None]
  - Back pain [None]
  - Dizziness postural [None]
  - Glomerulonephritis membranous [None]
  - Renal failure acute [None]
  - Autonomic failure syndrome [None]
  - Hypoaldosteronism [None]
